FAERS Safety Report 19611428 (Version 1)
Quarter: 2021Q3

REPORT INFORMATION
  Report Type: Spontaneous
  Country: US (occurrence: US)
  Receive Date: 20210726
  Receipt Date: 20210726
  Transmission Date: 20211014
  Serious: No
  Sender: FDA-Public Use
  Company Number: US-US-PROVELL PHARMACEUTICALS LLC-9252831

PATIENT
  Age: 74 Year
  Sex: Female

DRUGS (9)
  1. LOSARTAN AND HYDROCHLOROTHIAZIDE [Concomitant]
     Active Substance: HYDROCHLOROTHIAZIDE\LOSARTAN POTASSIUM
     Indication: HYPERTENSION
     Dosage: 100MG/12.5MG
  2. METFORMIN HCL [Concomitant]
     Active Substance: METFORMIN HYDROCHLORIDE
     Indication: DIABETES MELLITUS
  3. SUPER OMEGA [Concomitant]
     Indication: SUPPLEMENTATION THERAPY
  4. EUTHYROX [Suspect]
     Active Substance: LEVOTHYROXINE SODIUM
     Indication: HYPOTHYROIDISM
     Route: 048
  5. TIZANIDINE. [Concomitant]
     Active Substance: TIZANIDINE
     Indication: SPINAL PAIN
     Dosage: 2?4 MG
  6. LEVEMIR [Concomitant]
     Active Substance: INSULIN DETEMIR
     Indication: DIABETES MELLITUS
     Dosage: 22 UNITS
  7. MAGNESIUM CITRATE. [Concomitant]
     Active Substance: MAGNESIUM CITRATE
     Indication: SUPPLEMENTATION THERAPY
  8. NOVOLOG [Concomitant]
     Active Substance: INSULIN ASPART
     Indication: DIABETES MELLITUS
     Dosage: 3?5 UNITS
  9. METFORMIN HCL [Concomitant]
     Active Substance: METFORMIN HYDROCHLORIDE
     Dosage: METFORMIN HCL ER (EXTENDED RELEASE)

REACTIONS (4)
  - Sensation of foreign body [Unknown]
  - Abdominal discomfort [Not Recovered/Not Resolved]
  - Throat irritation [Not Recovered/Not Resolved]
  - Accidental exposure to product packaging [Unknown]

NARRATIVE: CASE EVENT DATE: 20210715
